FAERS Safety Report 18969374 (Version 2)
Quarter: 2021Q1

REPORT INFORMATION
  Report Type: Spontaneous
  Country: ES (occurrence: ES)
  Receive Date: 20210304
  Receipt Date: 20210316
  Transmission Date: 20210420
  Serious: Yes (Hospitalization, Other)
  Sender: FDA-Public Use
  Company Number: ES-BIOGEN-2021BI00982473

PATIENT
  Age: 5 Year
  Sex: Male
  Weight: 17 kg

DRUGS (13)
  1. SPINRAZA [Suspect]
     Active Substance: NUSINERSEN
     Indication: SPINAL MUSCULAR ATROPHY
     Route: 037
     Dates: start: 20191001
  2. APITEGROMAB. [Suspect]
     Active Substance: APITEGROMAB
     Indication: SPINAL MUSCULAR ATROPHY
     Route: 065
     Dates: start: 20190926
  3. APITEGROMAB. [Suspect]
     Active Substance: APITEGROMAB
     Route: 065
     Dates: start: 20200312
  4. APITEGROMAB. [Suspect]
     Active Substance: APITEGROMAB
     Route: 065
     Dates: start: 20200602
  5. APITEGROMAB. [Suspect]
     Active Substance: APITEGROMAB
     Route: 065
     Dates: start: 20200114
  6. APITEGROMAB. [Suspect]
     Active Substance: APITEGROMAB
     Route: 065
     Dates: start: 20200505
  7. SPINRAZA [Suspect]
     Active Substance: NUSINERSEN
     Route: 037
     Dates: start: 20200129
  8. APITEGROMAB. [Suspect]
     Active Substance: APITEGROMAB
     Route: 065
     Dates: start: 20191119
  9. APITEGROMAB. [Suspect]
     Active Substance: APITEGROMAB
     Route: 065
     Dates: start: 20200702
  10. APITEGROMAB. [Suspect]
     Active Substance: APITEGROMAB
     Route: 065
     Dates: start: 20191023
  11. SPINRAZA [Suspect]
     Active Substance: NUSINERSEN
     Route: 037
     Dates: start: 20200616
  12. APITEGROMAB. [Suspect]
     Active Substance: APITEGROMAB
     Route: 065
     Dates: start: 20191220
  13. APITEGROMAB. [Suspect]
     Active Substance: APITEGROMAB
     Route: 065
     Dates: start: 20200212

REACTIONS (2)
  - Adenoidal hypertrophy [Recovered/Resolved]
  - Tonsillar hypertrophy [Recovered/Resolved]

NARRATIVE: CASE EVENT DATE: 20200107
